FAERS Safety Report 9424447 (Version 1)
Quarter: 2013Q3

REPORT INFORMATION
  Report Type: Spontaneous
  Country: FR (occurrence: FR)
  Receive Date: 20130729
  Receipt Date: 20130729
  Transmission Date: 20140515
  Serious: Yes (Other)
  Sender: FDA-Public Use
  Company Number: FR-MYLANLABS-2013S1015927

PATIENT
  Age: 6 Decade
  Sex: Female

DRUGS (1)
  1. OMEPRAZOLE [Suspect]
     Route: 065

REACTIONS (2)
  - Subacute cutaneous lupus erythematosus [Unknown]
  - Condition aggravated [Unknown]
